FAERS Safety Report 10876919 (Version 1)
Quarter: 2015Q1

REPORT INFORMATION
  Report Type: Spontaneous
  Country: JP (occurrence: JP)
  Receive Date: 20150302
  Receipt Date: 20150302
  Transmission Date: 20150721
  Serious: Yes (Hospitalization)
  Sender: FDA-Public Use
  Company Number: JP-009507513-1109USA00400

PATIENT
  Age: 12 Month
  Sex: Male
  Weight: 10.9 kg

DRUGS (6)
  1. DECADRON [Suspect]
     Active Substance: DEXAMETHASONE
     Indication: LENTICULAR OPERATION
     Dosage: 0.4 ML, QD
     Route: 047
     Dates: start: 20110315, end: 20110315
  2. VAGOSTIGMIN (NEOSTIGMINE METHYLSULFATE) [Suspect]
     Active Substance: NEOSTIGMINE METHYLSULFATE
     Indication: ANAESTHESIA REVERSAL
     Dosage: 0.1 MG, QD
     Route: 042
     Dates: start: 20110315, end: 20110315
  3. MK-8137 [Suspect]
     Active Substance: VECURONIUM BROMIDE
     Indication: NEUROMUSCULAR BLOCKING THERAPY
     Dosage: 1 MG, UNK
     Route: 042
     Dates: start: 20110315, end: 20110315
  4. NITROUS OXIDE. [Suspect]
     Active Substance: NITROUS OXIDE
     Indication: LENTICULAR OPERATION
     Route: 055
     Dates: start: 20110315, end: 20110315
  5. SEVOFLURANE. [Suspect]
     Active Substance: SEVOFLURANE
     Indication: LENTICULAR OPERATION
     Route: 055
     Dates: start: 20110315, end: 20110315
  6. FOSMICIN [Suspect]
     Active Substance: FOSFOMYCIN CALCIUM
     Indication: LENTICULAR OPERATION
     Dosage: DIVIDED DOSE FREQUENCY UNKNOWN
     Route: 041
     Dates: start: 20110315, end: 20110315

REACTIONS (2)
  - Anaphylactic reaction [Recovered/Resolved]
  - Pulmonary oedema [Recovered/Resolved]

NARRATIVE: CASE EVENT DATE: 20110315
